FAERS Safety Report 10889493 (Version 5)
Quarter: 2015Q2

REPORT INFORMATION
  Report Type: Report from Study
  Country: DO (occurrence: DO)
  Receive Date: 20150305
  Receipt Date: 20150605
  Transmission Date: 20150821
  Serious: Yes (Hospitalization, Other)
  Sender: FDA-Public Use
  Company Number: DO-GILEAD-2015-0139424

PATIENT
  Age: 34 Year
  Sex: Female
  Weight: 73 kg

DRUGS (22)
  1. EMTRICITABINE/TENOFOVIR DISOPROXIL FUMARATE [Suspect]
     Active Substance: EMTRICITABINE\TENOFOVIR DISOPROXIL
     Indication: HIV INFECTION
     Dosage: 1 DF, QD
     Route: 048
     Dates: start: 20150205, end: 20150328
  2. CIPROFLOXACIN. [Concomitant]
     Active Substance: CIPROFLOXACIN
  3. CALCIUM+VITAMIN D3 [Concomitant]
     Indication: NUTRITIONAL SUPPLEMENTATION
     Route: 048
     Dates: start: 20141220
  4. MULTIVITAMINS [Concomitant]
     Active Substance: VITAMINS
     Indication: NUTRITIONAL SUPPLEMENTATION
     Route: 048
     Dates: start: 201006
  5. LECITHIN [Concomitant]
     Active Substance: LECITHIN
     Indication: NUTRITIONAL SUPPLEMENTATION
     Route: 048
     Dates: start: 20140728
  6. OMEPRAZOLE. [Concomitant]
     Active Substance: OMEPRAZOLE
  7. EMTRICITABINE/TENOFOVIR DISOPROXIL FUMARATE [Suspect]
     Active Substance: EMTRICITABINE\TENOFOVIR DISOPROXIL
     Dosage: 1 DF, QD
     Route: 048
     Dates: start: 20131016, end: 20150203
  8. NORVIR [Suspect]
     Active Substance: RITONAVIR
     Dosage: 100 MG, QD
     Route: 048
     Dates: start: 20131016, end: 20150203
  9. REYATAZ [Suspect]
     Active Substance: ATAZANAVIR SULFATE
     Indication: HIV INFECTION
     Dosage: 300 MG, QD
     Route: 048
     Dates: start: 20150205, end: 20150328
  10. REYATAZ [Suspect]
     Active Substance: ATAZANAVIR SULFATE
     Dosage: 300 MG, QD
     Route: 048
     Dates: start: 20131016, end: 20150203
  11. CARBOXYMETHYLCELLULOSE [Concomitant]
     Active Substance: CARBOXYMETHYLCELLULOSE
     Indication: EYE LUBRICATION THERAPY
     Route: 061
     Dates: start: 201403
  12. ONDANSETRON [Concomitant]
     Active Substance: ONDANSETRON
     Route: 042
  13. EMTRICITABINE/TENOFOVIR DISOPROXIL FUMARATE [Suspect]
     Active Substance: EMTRICITABINE\TENOFOVIR DISOPROXIL
     Dosage: 1 DF, QD
     Route: 048
     Dates: start: 20150330
  14. NORVIR [Suspect]
     Active Substance: RITONAVIR
     Indication: HIV INFECTION
     Dosage: 100 MG, QD
     Route: 048
     Dates: start: 20130205, end: 20150328
  15. REYATAZ [Suspect]
     Active Substance: ATAZANAVIR SULFATE
     Dosage: 300 MG, QD
     Route: 048
     Dates: start: 20150330
  16. OMEGA 3                            /01334101/ [Concomitant]
     Active Substance: OMEGA-3 FATTY ACIDS
     Indication: NUTRITIONAL SUPPLEMENTATION
     Route: 048
     Dates: start: 201006
  17. ETHINYLESTRADIOL/DROSPIRENONE [Concomitant]
     Active Substance: DROSPIRENONE\ETHINYL ESTRADIOL
     Indication: CONTRACEPTION
     Route: 048
     Dates: start: 20131016
  18. KETOPROFEN. [Concomitant]
     Active Substance: KETOPROFEN
     Route: 042
  19. NORVIR [Suspect]
     Active Substance: RITONAVIR
     Dosage: 100 MG, QD
     Route: 048
     Dates: start: 20150330
  20. SUCRALFATE. [Concomitant]
     Active Substance: SUCRALFATE
  21. CEFAZOLIN [Concomitant]
     Active Substance: CEFAZOLIN
     Route: 042
  22. NALBUPHINE [Concomitant]
     Active Substance: NALBUPHINE
     Route: 042

REACTIONS (3)
  - Cholelithiasis [Recovered/Resolved]
  - Cholecystitis acute [Recovered/Resolved with Sequelae]
  - Hydrocholecystis [Recovered/Resolved]

NARRATIVE: CASE EVENT DATE: 20150203
